FAERS Safety Report 9863726 (Version 1)
Quarter: 2014Q1

REPORT INFORMATION
  Report Type: Spontaneous
  Country: DE (occurrence: DE)
  Receive Date: 20140203
  Receipt Date: 20140203
  Transmission Date: 20141002
  Serious: Yes (Hospitalization, Other)
  Sender: FDA-Public Use
  Company Number: DE-PFIZER INC-2014027666

PATIENT
  Age: 28 Year
  Sex: Female

DRUGS (1)
  1. CLINDAMYCIN HCL [Suspect]
     Indication: DENTAL CARE
     Dosage: UNK
     Route: 048
     Dates: start: 20140109, end: 20140112

REACTIONS (6)
  - Drug-induced liver injury [Unknown]
  - Acute hepatic failure [Unknown]
  - Somnolence [Unknown]
  - Vomiting [Unknown]
  - Nausea [Unknown]
  - Jaundice [Unknown]
